FAERS Safety Report 5706535-3 (Version None)
Quarter: 2008Q2

REPORT INFORMATION
  Report Type: 
  Country: None (occurrence: None)
  Receive Date: 20080414
  Receipt Date: 20080403
  Transmission Date: 20081010
  Serious: Yes (Hospitalization)
  Sender: FDA-Public Use
  Company Number: 041-21880-08040187

PATIENT
  Age: 69 Year
  Sex: Male

DRUGS (1)
  1. REVLIMID [Suspect]
     Indication: MULTIPLE MYELOMA
     Dosage: 25 MG, 1 IN 1 D, ORAL
     Route: 048
     Dates: start: 20080318, end: 20080403

REACTIONS (5)
  - COUGH [None]
  - DYSPNOEA [None]
  - LUNG CONSOLIDATION [None]
  - PRODUCTIVE COUGH [None]
  - PYREXIA [None]
